FAERS Safety Report 11779884 (Version 1)
Quarter: 2015Q4

REPORT INFORMATION
  Report Type: Spontaneous
  Country: US (occurrence: US)
  Receive Date: 20151125
  Receipt Date: 20151125
  Transmission Date: 20160304
  Serious: No
  Sender: FDA-Public Use
  Company Number: US-BIOMARINAP-US-2015-108214

PATIENT
  Sex: Female
  Weight: 15.2 kg

DRUGS (1)
  1. KUVAN [Suspect]
     Active Substance: SAPROPTERIN DIHYDROCHLORIDE
     Indication: PHENYLKETONURIA
     Dosage: 300 MG, QD
     Route: 048
     Dates: start: 20151025

REACTIONS (3)
  - Oropharyngeal pain [Unknown]
  - Rhinorrhoea [Unknown]
  - Cough [Unknown]
